FAERS Safety Report 8232889-2 (Version None)
Quarter: 2012Q1

REPORT INFORMATION
  Report Type: 
  Country: None (occurrence: None)
  Receive Date: 20120324
  Receipt Date: 20120313
  Transmission Date: 20120608
  Serious: Yes (Other)
  Sender: FDA-Public Use
  Company Number: BR-AMGEN-BRASP2012017399

PATIENT
  Age: 23 Year
  Sex: Female
  Weight: 62 kg

DRUGS (7)
  1. MELOXICAM [Concomitant]
     Indication: RHEUMATOID ARTHRITIS
     Dosage: 7.5 MG, UNK
  2. PROVERA [Concomitant]
     Indication: ORAL CONTRACEPTION
     Dosage: UNK
  3. ENBREL [Suspect]
     Indication: RHEUMATOID ARTHRITIS
     Dosage: 50 MG, WEEKLY
     Route: 058
     Dates: start: 20110901
  4. PREDNISONE TAB [Concomitant]
     Indication: RHEUMATOID ARTHRITIS
     Dosage: 25 MG, UNK
  5. OMEPRAZOLE [Concomitant]
     Indication: GASTRIC DISORDER
     Dosage: 40 MG, UNK
  6. CALCIUM CARBONATE [Concomitant]
     Indication: BONE DISORDER
     Dosage: UNK
  7. ARAVA [Concomitant]
     Indication: RHEUMATOID ARTHRITIS
     Dosage: 5 MG, UNK

REACTIONS (5)
  - OROPHARYNGEAL PAIN [None]
  - SINUSITIS [None]
  - HYPERTENSION [None]
  - HAEMATOMA [None]
  - PAIN [None]
